FAERS Safety Report 5072845-9 (Version None)
Quarter: 2006Q3

REPORT INFORMATION
  Report Type: 
  Country: None (occurrence: None)
  Receive Date: 20060802
  Receipt Date: 20060717
  Transmission Date: 20061208
  Serious: Yes (Other)
  Sender: FDA-Public Use
  Company Number: 111580ISR

PATIENT
  Sex: Male

DRUGS (2)
  1. NAPROXEN [Suspect]
     Indication: ARTHRITIS
     Dosage: ORAL
     Route: 048
  2. FLURBIPROFEN [Suspect]
     Indication: ARTHRITIS
     Dosage: ORAL
     Route: 048

REACTIONS (3)
  - DEAFNESS TRANSITORY [None]
  - OTOTOXICITY [None]
  - TINNITUS [None]
